FAERS Safety Report 9951888 (Version 1)
Quarter: 2014Q1

REPORT INFORMATION
  Report Type: Spontaneous
  Country: US (occurrence: US)
  Receive Date: 20140304
  Receipt Date: 20140304
  Transmission Date: 20141002
  Serious: No
  Sender: FDA-Public Use
  Company Number: US-AMGEN-USASP2013074610

PATIENT
  Age: 59 Year
  Sex: Female
  Weight: 136.5 kg

DRUGS (6)
  1. ENBREL [Suspect]
     Indication: PRODUCT USED FOR UNKNOWN INDICATION
     Dosage: 50 MG, QWK
     Route: 058
  2. BENICAR HCT [Concomitant]
     Dosage: 20-12.5
     Route: 065
  3. TRAMADOL HCL [Concomitant]
     Dosage: 50 MG, UNK
     Route: 065
  4. MULTI VIT [Concomitant]
     Route: 065
  5. ASPIRIN [Concomitant]
     Dosage: 81 MG, UNK
     Route: 065
  6. ACID REDUCER                       /00550802/ [Concomitant]
     Dosage: 20 MG, UNK
     Route: 065

REACTIONS (1)
  - Vision blurred [Unknown]
